FAERS Safety Report 15713248 (Version 1)
Quarter: 2018Q4

REPORT INFORMATION
  Report Type: Spontaneous
  Country: US (occurrence: US)
  Receive Date: 20181129
  Receipt Date: 20181129
  Transmission Date: 20190205
  Serious: Yes (Hospitalization)
  Sender: FDA-Public Use
  Company Number: None

PATIENT
  Age: 57 Year
  Sex: Male
  Weight: 118.8 kg

DRUGS (1)
  1. BUPIVACAINE. [Suspect]
     Active Substance: BUPIVACAINE
     Indication: INGUINAL HERNIA REPAIR
     Dosage: ?          OTHER DOSE:1.6ML;?
     Route: 042
     Dates: start: 20180612, end: 20180612

REACTIONS (4)
  - Vomiting [None]
  - Dizziness [None]
  - Hypotension [None]
  - Nausea [None]

NARRATIVE: CASE EVENT DATE: 20180612
